FAERS Safety Report 14801137 (Version 1)
Quarter: 2018Q2

REPORT INFORMATION
  Report Type: Spontaneous
  Country: FR (occurrence: FR)
  Receive Date: 20180424
  Receipt Date: 20180424
  Transmission Date: 20180711
  Serious: Yes (Hospitalization)
  Sender: FDA-Public Use
  Company Number: FR-TEVA-2018-FR-884851

PATIENT
  Age: 81 Year
  Sex: Female
  Weight: 93 kg

DRUGS (13)
  1. FLUOROURACIL. [Suspect]
     Active Substance: FLUOROURACIL
     Indication: INVASIVE DUCTAL BREAST CARCINOMA
     Route: 042
  2. RYTHMOL 300 MG, COMPRIM? P?LLICUL? S?CABLE [Concomitant]
     Dosage: 2 DOSAGE FORMS DAILY;
     Route: 048
  3. ENDOXAN 50 MG, COMPRIM? ENROB? [Suspect]
     Active Substance: CYCLOPHOSPHAMIDE
     Indication: INVASIVE DUCTAL BREAST CARCINOMA
     Route: 048
  4. MORPHINE (SULFATE DE) [Concomitant]
     Dosage: 20 MILLIGRAM DAILY;
     Route: 048
  5. ALPRAZOLAM. [Concomitant]
     Active Substance: ALPRAZOLAM
     Dosage: .25 MILLIGRAM DAILY;
     Route: 048
  6. LASILIX 40 MG, COMPRIM? S?CABLE [Concomitant]
     Active Substance: FUROSEMIDE
     Dosage: .5 DOSAGE FORMS DAILY;
     Route: 048
  7. IRBESARTAN. [Concomitant]
     Active Substance: IRBESARTAN
     Dosage: 300 MILLIGRAM DAILY;
     Route: 048
  8. CELIPROLOL [Concomitant]
     Active Substance: CELIPROLOL
     Dosage: 200 MILLIGRAM DAILY;
     Route: 048
  9. PARACETAMOL [Concomitant]
     Active Substance: ACETAMINOPHEN
     Dosage: 4 GRAM DAILY;
     Route: 048
  10. GABAPENTINE [Concomitant]
     Active Substance: GABAPENTIN
     Dosage: 225 MILLIGRAM DAILY;
     Route: 048
  11. PRAVASTATINE SODIQUE [Concomitant]
     Active Substance: PRAVASTATIN SODIUM
     Dosage: 20 MILLIGRAM DAILY;
     Route: 048
  12. METHOTREXATE. [Suspect]
     Active Substance: METHOTREXATE
     Indication: INVASIVE DUCTAL BREAST CARCINOMA
     Route: 042
  13. KARDEGIC [Concomitant]
     Active Substance: ASPIRIN DL-LYSINE
     Dosage: 1 DOSAGE FORMS DAILY;
     Route: 048

REACTIONS (4)
  - Aplasia [Recovered/Resolved]
  - Anaemia [Recovered/Resolved]
  - Agranulocytosis [Recovered/Resolved]
  - Stomatitis [Recovered/Resolved]
